FAERS Safety Report 5002504-X (Version None)
Quarter: 2006Q2

REPORT INFORMATION
  Report Type: 
  Country: None (occurrence: None)
  Receive Date: 20060515
  Receipt Date: 20041025
  Transmission Date: 20061013
  Serious: Yes (Hospitalization)
  Sender: FDA-Public Use
  Company Number: DE-MERCK-0411DEU00236

PATIENT
  Age: 60 Year
  Sex: Female

DRUGS (12)
  1. VIOXX [Suspect]
     Indication: RHEUMATOID ARTHRITIS
     Route: 048
     Dates: start: 20000217, end: 20000401
  2. VIOXX [Suspect]
     Route: 048
     Dates: start: 20000401, end: 20000501
  3. VIOXX [Suspect]
     Route: 048
     Dates: start: 20030101, end: 20030101
  4. VIOXX [Suspect]
     Route: 048
     Dates: start: 20000501, end: 20030101
  5. VIOXX [Suspect]
     Route: 048
     Dates: start: 20030901, end: 20040901
  6. VIOXX [Suspect]
     Indication: PAIN
     Route: 048
     Dates: start: 20000217, end: 20000401
  7. VIOXX [Suspect]
     Route: 048
     Dates: start: 20000401, end: 20000501
  8. VIOXX [Suspect]
     Route: 048
     Dates: start: 20030101, end: 20030101
  9. VIOXX [Suspect]
     Route: 048
     Dates: start: 20000501, end: 20030101
  10. VIOXX [Suspect]
     Route: 048
     Dates: start: 20030901, end: 20040901
  11. METHOTREXATE [Suspect]
     Route: 065
  12. CORTICOSTEROIDS (UNSPECIFIED) [Suspect]
     Route: 065

REACTIONS (4)
  - CARDIAC FAILURE [None]
  - CHRONIC OBSTRUCTIVE PULMONARY DISEASE [None]
  - TACHYARRHYTHMIA [None]
  - TACHYCARDIA [None]
